FAERS Safety Report 4605156-3 (Version None)
Quarter: 2005Q1

REPORT INFORMATION
  Report Type: 
  Country: None (occurrence: None)
  Receive Date: 20050217
  Receipt Date: 20041118
  Transmission Date: 20050727
  Serious: No
  Sender: FDA-Public Use
  Company Number: S04-USA-07456-01

PATIENT
  Age: 76 Year
  Sex: Male

DRUGS (8)
  1. NAMENDA [Suspect]
     Indication: DEMENTIA ALZHEIMER'S TYPE
     Dosage: 5 MG QD PO
     Route: 048
     Dates: start: 20041107, end: 20041113
  2. NAMENDA [Suspect]
     Indication: DEMENTIA ALZHEIMER'S TYPE
     Dosage: 5 MG BID PO
     Route: 048
     Dates: start: 20041114
  3. CARIBODA [Concomitant]
  4. SYNTHROID [Concomitant]
  5. PRILOSEC [Concomitant]
  6. AVODART/USA/ (DUTASTERIDE) [Concomitant]
  7. KLOR-CON [Concomitant]
  8. TORSEMIDE [Concomitant]

REACTIONS (2)
  - CONFUSIONAL STATE [None]
  - HYPERSOMNIA [None]
